FAERS Safety Report 9867573 (Version 1)
Quarter: 2014Q1

REPORT INFORMATION
  Report Type: Spontaneous
  Country: US (occurrence: None)
  Receive Date: 20140203
  Receipt Date: 20140203
  Transmission Date: 20141002
  Serious: Yes (Other)
  Sender: FDA-Public Use
  Company Number: None

PATIENT
  Age: 17 Year
  Sex: Male

DRUGS (1)
  1. LAMICTAL 150MG [Suspect]
     Indication: GRAND MAL CONVULSION
     Dosage: 1 1/2  BID PO
     Route: 048
     Dates: start: 201207, end: 201212

REACTIONS (1)
  - Convulsion [None]
